FAERS Safety Report 7052174-4 (Version None)
Quarter: 2010Q4

REPORT INFORMATION
  Report Type: 
  Country: None (occurrence: None)
  Receive Date: 20101013
  Receipt Date: 20100928
  Transmission Date: 20110411
  Serious: Yes (Life-Threatening, Hospitalization)
  Sender: FDA-Public Use
  Company Number: 2010MA000976

PATIENT
  Age: 72 Year
  Sex: Female

DRUGS (21)
  1. TRAMADOL HYDROCHLORIDE [Suspect]
     Indication: PAIN
     Dosage: 50 MG; PRN; PO
     Route: 048
     Dates: start: 20100710, end: 20100710
  2. ORAMORPH SR [Suspect]
     Indication: PAIN
     Dosage: 10 MG; PRN
     Dates: start: 20100710, end: 20100710
  3. MS CONTIN [Suspect]
     Indication: PAIN
     Dosage: 20 MG; X1
     Dates: start: 20100710, end: 20100710
  4. PAREGORIC LIQUID USP (ALPHARMA) (PAREGORIC) [Suspect]
     Indication: PAIN
     Dosage: 2.5 MG; X1; SC
     Route: 058
     Dates: start: 20100710, end: 20100710
  5. NOVORAPID [Concomitant]
  6. PARACETAMOL [Concomitant]
  7. MIRTAZAPINE [Concomitant]
  8. ATORVASTATIN [Concomitant]
  9. FOLIC ACID [Concomitant]
  10. NOVOMIX [Concomitant]
  11. GLICLAZIDE [Concomitant]
  12. LISINOPRIL [Concomitant]
  13. PRAZOSIN HCL [Concomitant]
  14. BUMETANIDE [Concomitant]
  15. TEARS NATURALE [Concomitant]
  16. VISCOTEARS [Concomitant]
  17. EMILA [Concomitant]
  18. DEXTRAN 70/ HYPROMELLOSE [Concomitant]
  19. CARBOMER [Concomitant]
  20. LIDOCAINE/ PRILOCAINE [Concomitant]
  21. CO-CODAMOL [Concomitant]

REACTIONS (10)
  - DEPRESSED LEVEL OF CONSCIOUSNESS [None]
  - DRUG TOXICITY [None]
  - LUNG CONSOLIDATION [None]
  - PLEURAL EFFUSION [None]
  - RENAL IMPAIRMENT [None]
  - RESPIRATORY ARREST [None]
  - SOMNOLENCE [None]
  - URINE OUTPUT DECREASED [None]
  - VAGINAL DISCHARGE [None]
  - WHITE BLOOD CELL COUNT INCREASED [None]
